FAERS Safety Report 7965630-9 (Version None)
Quarter: 2011Q4

REPORT INFORMATION
  Report Type: 
  Country: None (occurrence: None)
  Receive Date: 20111208
  Receipt Date: 20111128
  Transmission Date: 20120403
  Serious: Yes (Hospitalization, Other)
  Sender: FDA-Public Use
  Company Number: PHHY2011GB104076

PATIENT
  Sex: Female

DRUGS (37)
  1. CARISOPRODOL [Suspect]
     Dosage: 250 MG, QID
  2. LORAZEPAM [Suspect]
     Indication: SLEEP DISORDER
     Dosage: 0.5 MG, QD
     Route: 048
  3. CALCIUM WITH VITAMIN D [Concomitant]
  4. METOPROLOL TARTRATE [Concomitant]
     Dates: start: 20090101
  5. SACCHAROMYCES BOULARDII [Concomitant]
     Dates: start: 20090101
  6. LEVALBUTEROL HCL [Concomitant]
     Dates: start: 20090101
  7. METOLAZONE [Concomitant]
     Dates: start: 20090101
  8. METOPROLOL SUCCINATE [Concomitant]
  9. PHENOXYBENZAMINE [Concomitant]
     Dates: start: 20090101
  10. PSYLLIUM [Concomitant]
     Dates: start: 20090101
  11. METAXALONE [Suspect]
     Dosage: 400 MG, QID
     Route: 048
  12. ACETAMINOPHEN [Concomitant]
     Dates: start: 20090101
  13. ESOMEPRAZOLE [Concomitant]
     Dates: start: 20090501
  14. ACETAMINOPHEN [Concomitant]
  15. FLUTICASONE PROPIONATE [Suspect]
  16. SALMETEROL XINAFOATE [Suspect]
     Route: 054
     Dates: start: 20090513
  17. FENTANYL [Concomitant]
     Dosage: 50 UG, UNK
     Dates: start: 20090101
  18. ROSUVASTATIN [Concomitant]
  19. POTASSIUM CHLORIDE [Suspect]
     Dosage: 20 DF, BID
     Route: 048
     Dates: start: 20090901
  20. ASPIRIN [Concomitant]
     Dates: start: 20090501
  21. FENTANYL [Concomitant]
     Dosage: 75 UG, UNK
  22. OMEPRAZOLE [Concomitant]
     Dates: start: 20090501
  23. VITAMIN D [Concomitant]
     Dates: start: 20090101
  24. DIGOXIN [Suspect]
     Route: 048
  25. DIPHENOXYLATE HCL + ATROPINE SULFATE [Suspect]
     Indication: DIARRHOEA
     Route: 048
  26. FUROSEMIDE [Suspect]
  27. SUCRALFATE [Suspect]
     Dosage: 1 G, QID
     Route: 048
  28. POTASSIUM CHLORIDE [Suspect]
     Route: 048
     Dates: start: 20090701
  29. AMLODIPINE [Concomitant]
  30. LEVOTHYROXINE SODIUM [Concomitant]
     Dates: start: 20090101
  31. MULTI-VITAMIN [Concomitant]
  32. TERIPARATIDE [Concomitant]
     Dates: start: 20090101
  33. DICYCLOMINE HCL [Suspect]
     Dosage: 10 MG, UNK
     Route: 048
     Dates: start: 20090501
  34. EZETIMIBE [Concomitant]
  35. HYDROCODONE [Concomitant]
  36. MEMANTINE [Concomitant]
     Dates: start: 20090101
  37. PREDNISONE TAB [Suspect]
     Route: 048

REACTIONS (20)
  - CONFUSIONAL STATE [None]
  - HAEMOGLOBIN DECREASED [None]
  - INSOMNIA [None]
  - FATIGUE [None]
  - MENTAL STATUS CHANGES [None]
  - MEMORY IMPAIRMENT [None]
  - HAEMATOCRIT DECREASED [None]
  - DISORIENTATION [None]
  - PSEUDODEMENTIA [None]
  - URINARY TRACT INFECTION [None]
  - PROTEIN TOTAL DECREASED [None]
  - DEPRESSION [None]
  - DECREASED APPETITE [None]
  - DELIRIUM [None]
  - HALLUCINATION, VISUAL [None]
  - AGITATION [None]
  - CONSTIPATION [None]
  - DEHYDRATION [None]
  - VISUAL IMPAIRMENT [None]
  - WEIGHT DECREASED [None]
